FAERS Safety Report 4648774-9 (Version None)
Quarter: 2005Q2

REPORT INFORMATION
  Report Type: 
  Country: None (occurrence: None)
  Receive Date: 20050427
  Receipt Date: 20050414
  Transmission Date: 20051028
  Serious: Yes (Hospitalization)
  Sender: FDA-Public Use
  Company Number: 2004110614

PATIENT
  Age: 58 Year
  Sex: Male
  Weight: 68 kg

DRUGS (6)
  1. VFEND [Suspect]
     Indication: ASPERGILLOSIS
     Dosage: 400 MG (200 MG, 2 IN 1 D); ORAL
     Route: 048
     Dates: start: 20041008, end: 20041013
  2. DEXCHLORPHENIRAMINE MALEATE [Concomitant]
  3. TIENAM (CILASTATIN, IMIPENEM) [Concomitant]
  4. PAROXETINE HYDROCHLORIDE [Concomitant]
  5. LEVOFLOXACIN [Concomitant]
  6. AMPHOTERICIN B [Concomitant]

REACTIONS (6)
  - BLOOD CREATININE INCREASED [None]
  - CONFUSIONAL STATE [None]
  - CREATININE RENAL CLEARANCE DECREASED [None]
  - DISORIENTATION [None]
  - HALLUCINATION [None]
  - OVERDOSE [None]
